FAERS Safety Report 8308077-8 (Version None)
Quarter: 2012Q2

REPORT INFORMATION
  Report Type: 
  Country: None (occurrence: None)
  Receive Date: 20120424
  Receipt Date: 20120420
  Transmission Date: 20120825
  Serious: Yes (Death, Hospitalization)
  Sender: FDA-Public Use
  Company Number: CH-ROCHE-1025192

PATIENT
  Age: 72 Year
  Sex: Male

DRUGS (12)
  1. LENALIDOMIDE [Suspect]
     Indication: B-CELL LYMPHOMA
     Dosage: DATE OF LAST DOSE PRIOR TO SAE:25/JAN/2012
     Route: 048
     Dates: start: 20111219
  2. LENALIDOMIDE [Suspect]
     Dosage: DATE OF LAST DOSE PRIOR TO SAE: 17/FEB/2012
     Route: 048
     Dates: start: 20120131, end: 20120304
  3. GLUCOPHAGE [Concomitant]
     Route: 048
     Dates: start: 20111101
  4. SIMVASTATIN [Concomitant]
     Route: 048
  5. ASPIRIN [Concomitant]
     Dates: start: 20120206
  6. BENDAMUSTINE [Suspect]
     Indication: B-CELL LYMPHOMA
     Dosage: DATE OF LAST DOSE PRIOR TO SAE:14/FEB/2012
     Route: 042
     Dates: start: 20111219, end: 20120214
  7. DEXAMETHASONE [Concomitant]
     Route: 048
     Dates: start: 20111219
  8. ALLOPURINOL [Concomitant]
     Route: 048
     Dates: start: 20111219
  9. ASPIRIN [Concomitant]
     Route: 048
  10. FRAXIFORTE [Concomitant]
     Route: 058
     Dates: start: 20120207, end: 20120217
  11. MABTHERA [Suspect]
     Indication: B-CELL LYMPHOMA
     Dosage: DATE OF LAST DOSE PRIOR TO SAE: 13/FEB/2012
     Route: 042
     Dates: start: 20111219
  12. PAROXETINE [Concomitant]
     Route: 048

REACTIONS (7)
  - ARRHYTHMIA SUPRAVENTRICULAR [None]
  - LUNG INFECTION [None]
  - ATRIAL FLUTTER [None]
  - NODAL ARRHYTHMIA [None]
  - PNEUMONIA [None]
  - SUPRAVENTRICULAR TACHYARRHYTHMIA [None]
  - VITREOUS HAEMORRHAGE [None]
